FAERS Safety Report 5162692-1 (Version None)
Quarter: 2006Q4

REPORT INFORMATION
  Report Type: 
  Country: None (occurrence: None)
  Receive Date: 20061201
  Receipt Date: 20060502
  Transmission Date: 20070319
  Serious: No
  Sender: FDA-Public Use
  Company Number: US-GLAXOSMITHKLINE-A0604084A

PATIENT
  Age: 64 Year
  Sex: Female

DRUGS (13)
  1. AUGMENTIN '125' [Suspect]
     Indication: URINARY TRACT INFECTION
     Dosage: 875MG TWICE PER DAY
     Route: 048
     Dates: start: 20060421, end: 20060427
  2. PREDNISONE TAB [Suspect]
  3. SYNTHROID [Concomitant]
  4. VALIUM [Concomitant]
  5. BENADRYL [Concomitant]
  6. SUDAFED 12 HOUR [Concomitant]
  7. ZELNORM [Concomitant]
  8. ZOLOFT [Concomitant]
  9. VITAMINS [Concomitant]
  10. NORGESIC FORTE [Concomitant]
  11. DONNATAL [Concomitant]
  12. LITHIUM CARBONATE [Concomitant]
  13. LANOXIN [Concomitant]

REACTIONS (3)
  - DYSPNOEA [None]
  - OXYGEN SATURATION DECREASED [None]
  - SWOLLEN TONGUE [None]
